FAERS Safety Report 7347301-5 (Version None)
Quarter: 2011Q1

REPORT INFORMATION
  Report Type: 
  Country: None (occurrence: None)
  Receive Date: 20110311
  Receipt Date: 20110301
  Transmission Date: 20110831
  Serious: Yes (Other)
  Sender: FDA-Public Use
  Company Number: TR-WATSON-2011-03024

PATIENT

DRUGS (3)
  1. LIDOCAINE HYDROCHLORIDE [Suspect]
     Indication: LOCAL ANAESTHESIA
     Dosage: UNK
     Route: 056
  2. LIDOCAINE HYDROCHLORIDE [Suspect]
     Indication: EYE PAIN
  3. ALCOHOL                            /00002101/ [Suspect]
     Indication: EYE PAIN
     Dosage: UNK
     Route: 056

REACTIONS (1)
  - BACTERIAL INFECTION [None]
